FAERS Safety Report 23124113 (Version 1)
Quarter: 2023Q4

REPORT INFORMATION
  Report Type: Spontaneous
  Country: US (occurrence: None)
  Receive Date: 20231027
  Receipt Date: 20231027
  Transmission Date: 20240109
  Serious: No
  Sender: FDA-Public Use
  Company Number: None

PATIENT
  Sex: Female
  Weight: 147 kg

DRUGS (2)
  1. CARBOPLATIN [Suspect]
     Active Substance: CARBOPLATIN
     Dates: end: 20231023
  2. TAXOL [Suspect]
     Active Substance: PACLITAXEL
     Dates: end: 20231023

REACTIONS (4)
  - Chest pain [None]
  - Palpitations [None]
  - Sinus bradycardia [None]
  - Pericardial effusion [None]

NARRATIVE: CASE EVENT DATE: 20231023
